FAERS Safety Report 5105268-4 (Version None)
Quarter: 2006Q3

REPORT INFORMATION
  Report Type: 
  Country: None (occurrence: None)
  Receive Date: 20060911
  Receipt Date: 20060823
  Transmission Date: 20061208
  Serious: Yes (Hospitalization, Other)
  Sender: FDA-Public Use
  Company Number: 2006-07-0255

PATIENT
  Age: 39 Year
  Sex: Female

DRUGS (17)
  1. PEG-INTRON [Suspect]
     Indication: HEPATITIS C
     Dates: start: 20060428
  2. RIBASPHERE [Suspect]
     Indication: HEPATITIS C
     Dosage: PO
     Route: 048
     Dates: start: 20060428
  3. AMITRIPTYLINE HYDROCHLORIDE (CON.) [Concomitant]
  4. BENZTROPINE MESYLAE (CON.) [Concomitant]
  5. COREG (CARVEDILOL) (CON.) [Concomitant]
  6. CYMBALTA (DULOXETINE HCL) (CON.) [Concomitant]
  7. GABITRIL FILMTAB (CON.) [Concomitant]
  8. LITHIUM CARBONATE (CON.) [Concomitant]
  9. PERPHENAZINE (S-P) (ORAL) CON.) [Concomitant]
  10. POTASSIUM CHLORIDE (S-P) (CON.) [Concomitant]
  11. PROMETHAZINE HYDROCHLORIDE (CON.) [Concomitant]
  12. PROPRANOLOL HYDROCHLORIDE (CON.) [Concomitant]
  13. TOPAMAX (CON.) [Concomitant]
  14. TOPROL XL (CON.) [Concomitant]
  15. TRAZODONE HYDROCHLORIDE (CON.) [Concomitant]
  16. ASPIRIN (PREV.) [Concomitant]
  17. FLAGYL (PREV.) [Concomitant]

REACTIONS (13)
  - ALOPECIA [None]
  - ANAEMIA [None]
  - AORTIC VALVE DISEASE [None]
  - BLOOD POTASSIUM DECREASED [None]
  - CONVULSION [None]
  - DEHYDRATION [None]
  - FATIGUE [None]
  - INJECTION SITE IRRITATION [None]
  - INJECTION SITE RASH [None]
  - PNEUMONIA [None]
  - PULMONARY OEDEMA [None]
  - VOMITING [None]
  - WHITE BLOOD CELL COUNT DECREASED [None]
